FAERS Safety Report 21095091 (Version 1)
Quarter: 2022Q3

REPORT INFORMATION
  Report Type: Spontaneous
  Country: US (occurrence: None)
  Receive Date: 20220716
  Receipt Date: 20220716
  Transmission Date: 20221027
  Serious: Yes (Other)
  Sender: FDA-Public Use
  Company Number: None

PATIENT
  Age: 68 Year
  Sex: Female
  Weight: 54 kg

DRUGS (7)
  1. DOXYCYCLINE [Suspect]
     Active Substance: DOXYCYCLINE
     Indication: Cellulitis
     Dosage: FREQUENCY : TWICE A DAY;?
     Route: 048
     Dates: start: 20220625, end: 20220701
  2. LOVASTATIN [Concomitant]
     Active Substance: LOVASTATIN
  3. HYDROCHLOROTHIAZIDE [Concomitant]
     Active Substance: HYDROCHLOROTHIAZIDE
  4. AMLODIPINE [Concomitant]
     Active Substance: AMLODIPINE BESYLATE
  5. VITAMIN D3 [Concomitant]
     Active Substance: CHOLECALCIFEROL
  6. MINERALS\VITAMINS [Concomitant]
     Active Substance: MINERALS\VITAMINS
  7. magnesium chloride (SLOW-MAG ORAL) [Concomitant]

REACTIONS (4)
  - Pain [None]
  - Skin irritation [None]
  - Oral candidiasis [None]
  - Oropharyngeal pain [None]

NARRATIVE: CASE EVENT DATE: 20220630
